FAERS Safety Report 15062316 (Version 5)
Quarter: 2018Q3

REPORT INFORMATION
  Report Type: Report from Study
  Country: US (occurrence: US)
  Receive Date: 20180625
  Receipt Date: 20180924
  Transmission Date: 20181010
  Serious: Yes (Other)
  Sender: FDA-Public Use
  Company Number: US-AMGEN-USASL2018083872

PATIENT
  Age: 75 Year
  Sex: Female
  Weight: 60.32 kg

DRUGS (2)
  1. ENBREL [Suspect]
     Active Substance: ETANERCEPT
     Dosage: 50 MG, QWK
     Route: 065
     Dates: end: 2018
  2. ENBREL [Suspect]
     Active Substance: ETANERCEPT
     Indication: RHEUMATOID ARTHRITIS
     Dosage: 50 MG, QWK
     Route: 065
     Dates: start: 2017

REACTIONS (13)
  - Injection site warmth [Unknown]
  - Injection site swelling [Unknown]
  - Eye patch application [Unknown]
  - Rash generalised [Unknown]
  - Injection site erythema [Unknown]
  - Eye infection staphylococcal [Not Recovered/Not Resolved]
  - Eye operation [Unknown]
  - Contusion [Unknown]
  - Eye infection fungal [Not Recovered/Not Resolved]
  - Fall [Unknown]
  - Injection site pruritus [Unknown]
  - Ulcerative keratitis [Recovering/Resolving]
  - Laceration [Unknown]

NARRATIVE: CASE EVENT DATE: 20180507
